FAERS Safety Report 14991140 (Version 1)
Quarter: 2018Q2

REPORT INFORMATION
  Report Type: Report from Study
  Country: US (occurrence: US)
  Receive Date: 20180608
  Receipt Date: 20180608
  Transmission Date: 20180711
  Serious: Yes (Hospitalization)
  Sender: FDA-Public Use
  Company Number: US-PFIZER INC-2018224825

PATIENT
  Age: 61 Year
  Sex: Female
  Weight: 66 kg

DRUGS (31)
  1. FLAXSEED OIL /01649403/ [Concomitant]
     Indication: PROPHYLAXIS
     Dosage: UNK UNK, AS NEEDED
     Route: 048
     Dates: start: 2015
  2. GABAPENTIN. [Concomitant]
     Active Substance: GABAPENTIN
     Indication: NEUROPATHY PERIPHERAL
     Dosage: UNK UNK, AS NEEDED
     Route: 048
     Dates: start: 2015
  3. FULVESTRANT. [Suspect]
     Active Substance: FULVESTRANT
     Indication: BREAST CANCER METASTATIC
     Dosage: 500 MG, CYCLIC (ON DAYS 1, 15 OF CYCLE 1, THEN CYCLE 2 DAY 1 AND THEN DAY 28 OF EACH SUBSEQUENT)
     Route: 030
     Dates: start: 20180220
  4. IBUPROFEN. [Concomitant]
     Active Substance: IBUPROFEN
     Indication: HEADACHE
     Dosage: UNK UNK, AS NEEDED
     Route: 048
     Dates: start: 2010
  5. ASTRAGALUS ROOT [Concomitant]
     Indication: PROPHYLAXIS
     Dosage: UNK UNK, DAILY
     Route: 048
     Dates: start: 20180225
  6. MELATONIN [Concomitant]
     Active Substance: MELATONIN
     Indication: INSOMNIA
     Dosage: UNK UNK, AS NEEDED
     Route: 048
     Dates: start: 2015
  7. MIRALAX [Concomitant]
     Active Substance: POLYETHYLENE GLYCOL 3350
     Indication: CONSTIPATION
     Dosage: UNK UNK, AS NEEDED
     Route: 048
     Dates: start: 2015
  8. VALTREX [Concomitant]
     Active Substance: VALACYCLOVIR HYDROCHLORIDE
     Indication: ORAL HERPES
     Dosage: UNK UNK, AS NEEDED
     Route: 048
     Dates: start: 2005
  9. PF-05212384 [Suspect]
     Active Substance: GEDATOLISIB
     Indication: BREAST CANCER METASTATIC
     Dosage: 150 MG, CYCLIC (ON DAYS 1, 8, 15 AND 22 OF EACH 28 DAYS CYCLE)
     Route: 042
     Dates: start: 20180220
  10. FLEXERIL [Concomitant]
     Active Substance: CYCLOBENZAPRINE HYDROCHLORIDE
     Indication: MYALGIA
     Dosage: UNK UNK, AS NEEDED
     Route: 048
     Dates: start: 201708
  11. PALBOCICLIB [Suspect]
     Active Substance: PALBOCICLIB
     Indication: BREAST CANCER METASTATIC
     Dosage: 100 MG, CYCLIC (ONCE DAILY FOR 21 DAYS ON / 7 DAYS OFF FOR EACH 28 DAY CYCLE)
     Route: 048
     Dates: start: 20180220
  12. VALIUM [Concomitant]
     Active Substance: DIAZEPAM
     Indication: INSOMNIA
     Dosage: UNK UNK, AS NEEDED
     Route: 048
     Dates: start: 2015
  13. ALLEGRA [Concomitant]
     Active Substance: FEXOFENADINE HYDROCHLORIDE
     Indication: ASTHMA
     Dosage: UNK UNK, AS NEEDED
     Route: 048
     Dates: start: 2012
  14. DEXAMETHASONE. [Concomitant]
     Active Substance: DEXAMETHASONE
     Indication: STOMATITIS
     Dosage: UNK UNK, AS NEEDED
     Route: 048
     Dates: start: 20180227
  15. LIDOCAINE AND PRILOCAINE [Concomitant]
     Active Substance: LIDOCAINE\PRILOCAINE
     Indication: PROPHYLAXIS
     Dosage: UNK UNK, AS NEEDED
     Route: 061
     Dates: start: 20180523
  16. SENNA /00142201/ [Concomitant]
     Active Substance: SENNA LEAF
     Indication: CONSTIPATION
     Dosage: UNK UNK, AS NEEDED
     Route: 048
     Dates: start: 2015
  17. VITAMIN E /00110501/ [Concomitant]
     Active Substance: TOCOPHEROL
     Indication: PROPHYLAXIS
     Dosage: UNK UNK, AS NEEDED
     Route: 048
     Dates: start: 2015
  18. ZANTAC [Concomitant]
     Active Substance: RANITIDINE HYDROCHLORIDE
     Indication: GASTROOESOPHAGEAL REFLUX DISEASE
     Dosage: UNK UNK, AS NEEDED
     Route: 048
     Dates: start: 20180520
  19. ZINC. [Concomitant]
     Active Substance: ZINC
     Indication: PROPHYLAXIS
     Dosage: UNK UNK, AS NEEDED
     Route: 048
     Dates: start: 2013
  20. BACTRIM [Concomitant]
     Active Substance: SULFAMETHOXAZOLE\TRIMETHOPRIM
     Indication: URINARY TRACT INFECTION
     Dosage: UNK UNK, DAILY
     Route: 048
     Dates: start: 20180525
  21. VITAMIN C [Concomitant]
     Active Substance: ASCORBIC ACID
     Indication: PROPHYLAXIS
     Dosage: UNK UNK, DAILY
     Route: 048
     Dates: start: 201710
  22. CALCIUM CARBONATE/VITAMIN D3 [Concomitant]
     Active Substance: CALCIUM CARBONATE\CHOLECALCIFEROL
     Indication: PROPHYLAXIS
     Dosage: UNK UNK, DAILY
     Route: 048
     Dates: start: 2012
  23. ZOLPIDEM [Concomitant]
     Active Substance: ZOLPIDEM\ZOLPIDEM TARTRATE
     Indication: INSOMNIA
     Dosage: UNK UNK, AS NEEDED
     Route: 048
     Dates: start: 2010
  24. KYTRIL [Concomitant]
     Active Substance: GRANISETRON HYDROCHLORIDE
     Indication: NAUSEA
     Dosage: UNK UNK, PRN Q7DAYS
     Dates: start: 20180420
  25. RITALIN [Concomitant]
     Active Substance: METHYLPHENIDATE HYDROCHLORIDE
     Indication: SOMNOLENCE
  26. SINGULAIR [Concomitant]
     Active Substance: MONTELUKAST SODIUM
     Indication: ASTHMA
     Dosage: UNK UNK, AS NEEDED
     Route: 048
     Dates: start: 2012
  27. TRAMADOL. [Concomitant]
     Active Substance: TRAMADOL
     Indication: ARTHRALGIA
     Dosage: UNK UNK, AS NEEDED
     Route: 048
     Dates: start: 2017
  28. HYDROCORTISONE. [Concomitant]
     Active Substance: HYDROCORTISONE
     Indication: RASH
     Dosage: UNK UNK, AS NEEDED
     Route: 061
     Dates: start: 20180410
  29. TRIAMCINOLONE [Concomitant]
     Active Substance: TRIAMCINOLONE
     Indication: RASH
     Dosage: UNK UNK, AS NEEDED
     Route: 061
     Dates: start: 20180412
  30. RITALIN [Concomitant]
     Active Substance: METHYLPHENIDATE HYDROCHLORIDE
     Indication: FATIGUE
     Dosage: UNK UNK, AS NEEDED
     Route: 048
     Dates: start: 2017
  31. ZYPREXA [Concomitant]
     Active Substance: OLANZAPINE
     Indication: INSOMNIA
     Dosage: UNK UNK, DAILY
     Route: 048
     Dates: start: 20180510

REACTIONS (1)
  - Pulmonary embolism [Recovering/Resolving]

NARRATIVE: CASE EVENT DATE: 20180528
